FAERS Safety Report 9339194 (Version 1)
Quarter: 2013Q2

REPORT INFORMATION
  Report Type: Spontaneous
  Country: US (occurrence: None)
  Receive Date: 20130606
  Receipt Date: 20130606
  Transmission Date: 20140414
  Serious: No
  Sender: FDA-Public Use
  Company Number: None

PATIENT
  Age: 85 Year
  Sex: Female

DRUGS (9)
  1. TARCEVA [Suspect]
     Indication: BRONCHIAL CARCINOMA
     Route: 048
     Dates: start: 20130207, end: 20130507
  2. TARCEVA [Suspect]
     Indication: LUNG NEOPLASM MALIGNANT
     Route: 048
     Dates: start: 20130207, end: 20130507
  3. ASPIRIN [Concomitant]
  4. HYDRALAZINE [Concomitant]
  5. DIGOXIN [Concomitant]
  6. FUROSEMIDE [Concomitant]
  7. BENAZEPRIL [Concomitant]
  8. AMLODIPINE [Concomitant]
  9. CARVEDILOL [Concomitant]

REACTIONS (1)
  - Dysuria [None]
